FAERS Safety Report 5059129-X (Version None)
Quarter: 2006Q3

REPORT INFORMATION
  Report Type: 
  Country: None (occurrence: None)
  Receive Date: 20060718
  Receipt Date: 20060714
  Transmission Date: 20061208
  Serious: Yes (Other)
  Sender: FDA-Public Use
  Company Number: 008009

PATIENT
  Sex: Female

DRUGS (3)
  1. MEDROXYPROGESTERONE ACETATE [Suspect]
     Dosage: ORAL
     Route: 048
     Dates: start: 19850601, end: 19961201
  2. PREMARIN [Suspect]
     Dosage: ORAL
     Route: 048
     Dates: start: 19850601, end: 19961201
  3. PROVERA [Suspect]
     Dosage: ORAL
     Route: 048
     Dates: start: 19850601, end: 19961201

REACTIONS (1)
  - BREAST CANCER FEMALE [None]
